FAERS Safety Report 12654826 (Version 1)
Quarter: 2016Q3

REPORT INFORMATION
  Report Type: Spontaneous
  Country: US (occurrence: None)
  Receive Date: 20160815
  Receipt Date: 20160815
  Transmission Date: 20161109
  Serious: Yes (Hospitalization)
  Sender: FDA-Public Use
  Company Number: None

PATIENT
  Age: 28 Year
  Sex: Male
  Weight: 80.5 kg

DRUGS (1)
  1. DOCUSATE [Suspect]
     Active Substance: DOCUSATE
     Indication: CONSTIPATION
     Dates: start: 20160222, end: 20160226

REACTIONS (2)
  - Product quality issue [None]
  - Burkholderia infection [None]

NARRATIVE: CASE EVENT DATE: 20160301
